FAERS Safety Report 23629776 (Version 1)
Quarter: 2024Q1

REPORT INFORMATION
  Report Type: Spontaneous
  Country: FI (occurrence: FI)
  Receive Date: 20240314
  Receipt Date: 20240314
  Transmission Date: 20240410
  Serious: Yes (Hospitalization)
  Sender: FDA-Public Use
  Company Number: FI-CHEPLA-2024002954

PATIENT
  Sex: Female

DRUGS (7)
  1. OLANZAPINE PAMOATE [Suspect]
     Active Substance: OLANZAPINE PAMOATE
     Dates: start: 2021
  2. OLANZAPINE PAMOATE [Suspect]
     Active Substance: OLANZAPINE PAMOATE
     Dosage: PC: 00300020280551/ SN: 116778018223/ INJECTION GIVEN TO RIGHT GLUTEUS MEDIUS/INJECTION RECEIVED ...
     Route: 030
     Dates: start: 202207, end: 20240209
  3. HALOPERIDOL [Concomitant]
     Active Substance: HALOPERIDOL
     Dosage: DEPOT/EVERY OTHER WEEK ALTERNATING WITH ZYPADHERA
     Route: 030
  4. TOPIRAMATE [Concomitant]
     Active Substance: TOPIRAMATE
     Dosage: BID?DAILY DOSE: 2 DOSAGE FORM
  5. LAMOTRIGINE [Concomitant]
     Active Substance: LAMOTRIGINE
     Dosage: DAILY DOSE: 1 DOSAGE FORM
  6. HALOPERIDOL [Concomitant]
     Active Substance: HALOPERIDOL
     Dosage: 2-5 MG PER DAY
  7. DIAZEPAM [Concomitant]
     Active Substance: DIAZEPAM
     Dosage: BID?DAILY DOSE: 2 DOSAGE FORM

REACTIONS (8)
  - Restlessness [Recovered/Resolved]
  - Nausea [Recovered/Resolved]
  - Asthenia [Recovered/Resolved]
  - Cognitive disorder [Recovered/Resolved]
  - Seizure [Recovered/Resolved]
  - Anxiety [Recovered/Resolved]
  - Confusional state [Recovered/Resolved]
  - Sedation [Recovered/Resolved]

NARRATIVE: CASE EVENT DATE: 20240209
